FAERS Safety Report 7278612-X (Version None)
Quarter: 2011Q1

REPORT INFORMATION
  Report Type: 
  Country: None (occurrence: None)
  Receive Date: 20110207
  Receipt Date: 20110203
  Transmission Date: 20110831
  Serious: Yes (Death, Other)
  Sender: FDA-Public Use
  Company Number: US-GENZYME-FLUD-1000690

PATIENT

DRUGS (12)
  1. MELPHALAN [Suspect]
     Indication: STEM CELL TRANSPLANT
     Dosage: 140 MG/M2, QDX1
     Route: 065
  2. CEFAZOLIN [Concomitant]
     Indication: INFECTION PROPHYLAXIS
  3. TACROLIMUS [Concomitant]
     Indication: PROPHYLAXIS AGAINST GRAFT VERSUS HOST DISEASE
  4. AMPHOTERICIN B [Concomitant]
     Indication: ANTIFUNGAL PROPHYLAXIS
  5. SIROLIMUS [Concomitant]
     Indication: PROPHYLAXIS AGAINST GRAFT VERSUS HOST DISEASE
  6. ACYCLOVIR [Concomitant]
     Indication: INFECTION PROPHYLAXIS
  7. TRIMETHOPRIM + SULFAMETHOXAZOLE [Concomitant]
     Indication: INFECTION PROPHYLAXIS
     Dosage: UNK
     Route: 048
  8. MICAFUNGIN [Concomitant]
     Indication: ANTIFUNGAL PROPHYLAXIS
  9. ATOVAQUONE [Concomitant]
     Indication: INFECTION PROPHYLAXIS
  10. FLUDARA [Suspect]
     Indication: STEM CELL TRANSPLANT
     Dosage: 25 MG/M2, QDX5
     Route: 065
  11. CEFTAZIDIME [Concomitant]
     Indication: INFECTION PROPHYLAXIS
  12. DAPSON [Concomitant]
     Indication: INFECTION PROPHYLAXIS

REACTIONS (6)
  - RESPIRATORY FAILURE [None]
  - CHRONIC GRAFT VERSUS HOST DISEASE [None]
  - DISEASE PROGRESSION [None]
  - MULTI-ORGAN FAILURE [None]
  - ACUTE GRAFT VERSUS HOST DISEASE [None]
  - INFECTION [None]
